FAERS Safety Report 6520784-6 (Version None)
Quarter: 2009Q4

REPORT INFORMATION
  Report Type: 
  Country: None (occurrence: None)
  Receive Date: 20091229
  Receipt Date: 20091221
  Transmission Date: 20100525
  Serious: Yes (Death, Other)
  Sender: FDA-Public Use
  Company Number: US-TEVA-218656USA

PATIENT
  Age: 65 Year
  Sex: Male

DRUGS (9)
  1. METHOTREXATE [Suspect]
     Indication: POLYNEUROPATHY
     Dosage: 7.5-30MG WEEKLY
  2. METHOTREXATE [Suspect]
  3. MYCOPHENOLATE MOFETIL [Suspect]
     Indication: POLYNEUROPATHY
     Dosage: TITRATED TO 2500MG DAILY
     Dates: start: 20010101, end: 20061001
  4. AZATHIOPRINE [Suspect]
     Indication: POLYNEUROPATHY
     Dosage: TITRATED TO 200MG DAILY
  5. PREDNISONE [Suspect]
     Indication: POLYNEUROPATHY
     Dosage: 9-30MG DAILY
     Dates: start: 19960101, end: 20011001
  6. PREDNISONE [Suspect]
     Dosage: 6-35MG DAILY
  7. CYCLOPHOSPHAMIDE [Suspect]
     Indication: POLYNEUROPATHY
  8. RITUXIMAB [Suspect]
     Indication: POLYNEUROPATHY
     Dosage: WEEKLY FOR SIX DOSES
     Dates: start: 20061106
  9. RITUXIMAB [Suspect]
     Dosage: FOR SIX DOSES

REACTIONS (5)
  - B-CELL LYMPHOMA [None]
  - CENTRAL NERVOUS SYSTEM LYMPHOMA [None]
  - EPSTEIN-BARR VIRUS INFECTION [None]
  - GENERAL PHYSICAL HEALTH DETERIORATION [None]
  - METASTATIC MALIGNANT MELANOMA [None]
